FAERS Safety Report 9693163 (Version 3)
Quarter: 2013Q4

REPORT INFORMATION
  Report Type: Spontaneous
  Country: IT (occurrence: None)
  Receive Date: 20131114
  Receipt Date: 20131129
  Transmission Date: 20140711
  Serious: Yes (Other)
  Sender: FDA-Public Use
  Company Number: AUR-APL-2013-09438

PATIENT
  Age: 73 Year
  Sex: Male

DRUGS (6)
  1. RAMIPRIL [Suspect]
     Indication: HYPERTENSION
     Route: 048
     Dates: start: 20130201, end: 20130919
  2. ALFUZOSIN [Suspect]
     Indication: BENIGN PROSTATIC HYPERPLASIA
     Route: 048
     Dates: start: 20100901, end: 20130919
  3. LUVION [Suspect]
     Indication: HYPERTENSION
     Dosage: L
     Route: 048
     Dates: start: 20130201, end: 20130919
  4. SOLIAN (AMISULPRIDE) [Concomitant]
  5. BISOPROLOL (BISOPROLOL) [Concomitant]
  6. FINASTERIDE (FINASTERIDE) [Concomitant]

REACTIONS (7)
  - Disorientation [None]
  - Hyperhidrosis [None]
  - Hypotension [None]
  - Presyncope [None]
  - Trigger finger [None]
  - Tremor [None]
  - Sinus bradycardia [None]
